FAERS Safety Report 18503376 (Version 3)
Quarter: 2020Q4

REPORT INFORMATION
  Report Type: Spontaneous
  Country: IT (occurrence: IT)
  Receive Date: 20201113
  Receipt Date: 20201230
  Transmission Date: 20210114
  Serious: Yes (Other)
  Sender: FDA-Public Use
  Company Number: NVSC2020IT302707

PATIENT
  Age: 18 Year
  Sex: Male

DRUGS (1)
  1. CANAKINUMAB. [Suspect]
     Active Substance: CANAKINUMAB
     Indication: MEVALONATE KINASE DEFICIENCY
     Dosage: 150 MG(EVERY 6 WEEKS)
     Route: 065

REACTIONS (3)
  - Acne cystic [Recovering/Resolving]
  - Anal abscess [Recovered/Resolved]
  - Pyrexia [Unknown]
